FAERS Safety Report 21562387 (Version 1)
Quarter: 2022Q4

REPORT INFORMATION
  Report Type: Spontaneous
  Country: US (occurrence: US)
  Receive Date: 20221107
  Receipt Date: 20221107
  Transmission Date: 20230113
  Serious: No
  Sender: FDA-Public Use
  Company Number: US-LEO Pharma-346632

PATIENT
  Age: 53 Year
  Sex: Female

DRUGS (1)
  1. ADBRY [Suspect]
     Active Substance: TRALOKINUMAB-LDRM
     Indication: Dermatitis
     Route: 058
     Dates: start: 20221006

REACTIONS (2)
  - Eye discharge [Unknown]
  - Eye irritation [Unknown]

NARRATIVE: CASE EVENT DATE: 20221024
